FAERS Safety Report 5888879-8 (Version None)
Quarter: 2008Q3

REPORT INFORMATION
  Report Type: 
  Country: None (occurrence: None)
  Receive Date: 20080919
  Receipt Date: 20080912
  Transmission Date: 20090109
  Serious: Yes (Hospitalization)
  Sender: FDA-Public Use
  Company Number: PHHY2008FR12027

PATIENT
  Sex: Female
  Weight: 80 kg

DRUGS (6)
  1. ACLASTA [Suspect]
     Indication: OSTEOPOROSIS
     Dosage: 5 MG
     Dates: start: 20080608
  2. DRUG USED IN DIABETES [Concomitant]
  3. PLAVIX [Concomitant]
  4. ASPIRIN [Concomitant]
  5. ESOMEPRAZOLE MAGNESIUM [Concomitant]
  6. AMLOD [Concomitant]

REACTIONS (2)
  - FALL [None]
  - MALAISE [None]
